FAERS Safety Report 8079510-4 (Version None)
Quarter: 2012Q1

REPORT INFORMATION
  Report Type: 
  Country: None (occurrence: None)
  Receive Date: 20120128
  Receipt Date: 20110829
  Transmission Date: 20120608
  Serious: No
  Sender: FDA-Public Use
  Company Number: US-ABBOTT-11P-163-0850148-00

PATIENT
  Age: 59 Year
  Sex: Female

DRUGS (14)
  1. MELOXICAM [Concomitant]
     Indication: ARTHRITIS
  2. RAMIPRIL [Concomitant]
     Indication: HYPERTENSION
  3. OXYBUTYNIN [Concomitant]
     Indication: POLLAKIURIA
  4. TRICOR [Concomitant]
     Indication: BLOOD CHOLESTEROL INCREASED
  5. TRICOR [Concomitant]
     Indication: BLOOD TRIGLYCERIDES INCREASED
  6. LANTUS [Concomitant]
     Indication: DIABETES MELLITUS
     Route: 058
  7. ASACOL [Concomitant]
     Indication: COLITIS ULCERATIVE
  8. LOVAZA [Concomitant]
     Indication: PRODUCT USED FOR UNKNOWN INDICATION
  9. BLACK COHOSH [Concomitant]
     Indication: HOT FLUSH
  10. HUMIRA [Suspect]
     Indication: CROHN'S DISEASE
     Dosage: LOADING DOSE
     Dates: start: 20110829
  11. NOVOLOG [Concomitant]
     Indication: DIABETES MELLITUS
     Dosage: SLIDING SCALE
     Route: 058
  12. OMEPRAZOLE [Concomitant]
     Indication: GASTROOESOPHAGEAL REFLUX DISEASE
  13. CRESTOR [Concomitant]
     Indication: BLOOD TRIGLYCERIDES INCREASED
  14. CRESTOR [Concomitant]
     Indication: BLOOD CHOLESTEROL INCREASED

REACTIONS (1)
  - INJECTION SITE PAIN [None]
